FAERS Safety Report 10268161 (Version 1)
Quarter: 2014Q2

REPORT INFORMATION
  Report Type: Spontaneous
  Country: FR (occurrence: FR)
  Receive Date: 20140630
  Receipt Date: 20140630
  Transmission Date: 20141212
  Serious: Yes (Death)
  Sender: FDA-Public Use
  Company Number: FR-SA-2014SA085660

PATIENT
  Age: 74 Year
  Sex: 0

DRUGS (14)
  1. OXALIPLATINE DAKOTA PHARM [Suspect]
     Indication: COLON CANCER
     Route: 042
     Dates: start: 20110818, end: 20111208
  2. AVASTIN [Suspect]
     Indication: COLON CANCER
     Route: 042
     Dates: start: 20110901, end: 20111208
  3. FLUOROURACILE WINTHROP [Suspect]
     Indication: SMALL INTESTINE CARCINOMA METASTATIC
     Route: 042
     Dates: start: 20110818, end: 20111208
  4. KARDEGIC [Concomitant]
  5. GLUCOPHAGE [Concomitant]
  6. ELISOR [Concomitant]
  7. SOPROL [Concomitant]
  8. COTAREG [Concomitant]
  9. ODRIK [Concomitant]
  10. RASILEZ [Concomitant]
  11. AMLOR [Concomitant]
     Dates: start: 201111
  12. ARTOTEC [Concomitant]
  13. DOLIPRANE [Concomitant]
  14. ALLOPURINOL [Concomitant]
     Dates: start: 201111

REACTIONS (6)
  - Large intestine perforation [Fatal]
  - Rectal haemorrhage [Fatal]
  - Colitis ischaemic [Fatal]
  - Abdominal pain [Fatal]
  - Dysphagia [Fatal]
  - Abdominal distension [Fatal]
